FAERS Safety Report 4387907-9 (Version None)
Quarter: 2004Q2

REPORT INFORMATION
  Report Type: 
  Country: None (occurrence: None)
  Receive Date: 20040607
  Receipt Date: 20031118
  Transmission Date: 20050107
  Serious: Yes (Other)
  Sender: FDA-Public Use
  Company Number: 352243

PATIENT
  Age: 12 Year
  Sex: Male
  Weight: 81.6 kg

DRUGS (1)
  1. ACCUTANE [Suspect]
     Indication: ACNE CYSTIC
     Dates: start: 20021015, end: 20030315

REACTIONS (4)
  - ARTHRALGIA [None]
  - EPIPHYSES PREMATURE FUSION [None]
  - MARROW HYPERPLASIA [None]
  - SERONEGATIVE ARTHRITIS [None]
